FAERS Safety Report 16364965 (Version 1)
Quarter: 2019Q2

REPORT INFORMATION
  Report Type: Spontaneous
  Country: US (occurrence: US)
  Receive Date: 20190529
  Receipt Date: 20190529
  Transmission Date: 20190711
  Serious: Yes (Hospitalization, Other)
  Sender: FDA-Public Use
  Company Number: US-ROCHE-2322029

PATIENT
  Age: 62 Year
  Sex: Female

DRUGS (14)
  1. BONIVA [Suspect]
     Active Substance: IBANDRONATE SODIUM
     Indication: OSTEOPOROSIS
     Route: 048
     Dates: start: 20070426, end: 201112
  2. PREMARIN [Concomitant]
     Active Substance: ESTROGENS, CONJUGATED
  3. CELEBREX [Concomitant]
     Active Substance: CELECOXIB
  4. SKELAXIN [METAXALONE] [Concomitant]
  5. DIOVAN HCT [Concomitant]
     Active Substance: HYDROCHLOROTHIAZIDE\VALSARTAN
  6. TORSEMIDE. [Concomitant]
     Active Substance: TORSEMIDE
  7. VERAMYST [Concomitant]
     Active Substance: FLUTICASONE FUROATE
  8. CALCIUM [Concomitant]
     Active Substance: CALCIUM
  9. ACTONEL [Suspect]
     Active Substance: RISEDRONATE SODIUM
     Indication: OSTEOPOROSIS
     Route: 048
     Dates: start: 20060501
  10. LEVSIN [Concomitant]
     Active Substance: HYOSCYAMINE SULFATE
  11. RESTASIS [Concomitant]
     Active Substance: CYCLOSPORINE
  12. GLUCOSAMINE [Concomitant]
     Active Substance: GLUCOSAMINE
  13. METROGEL [Concomitant]
     Active Substance: METRONIDAZOLE
  14. COLECALCIFEROL [Concomitant]
     Active Substance: CHOLECALCIFEROL

REACTIONS (4)
  - Femur fracture [Recovering/Resolving]
  - Low turnover osteopathy [Unknown]
  - Fracture malunion [Unknown]
  - Stress fracture [Unknown]

NARRATIVE: CASE EVENT DATE: 20110905
